FAERS Safety Report 5148203-5 (Version None)
Quarter: 2006Q4

REPORT INFORMATION
  Report Type: 
  Country: None (occurrence: None)
  Receive Date: 20060918
  Receipt Date: 20060306
  Transmission Date: 20070319
  Serious: Yes (Other)
  Sender: FDA-Public Use
  Company Number: US-JNJFOC-20060203079

PATIENT
  Sex: Female
  Weight: 9.4 kg

DRUGS (4)
  1. TOPAMAX [Suspect]
     Indication: INFANTILE SPASMS
     Dosage: 50 MG , 2 IN 1 DAY, ORAL
     Route: 048
     Dates: start: 20050103, end: 20060210
  2. KEPPRA [Concomitant]
  3. VALIUM [Concomitant]
  4. LAMICTAL [Concomitant]

REACTIONS (3)
  - NEPHROLITHIASIS [None]
  - URINE COLOUR ABNORMAL [None]
  - URINE ODOUR ABNORMAL [None]
